FAERS Safety Report 18980178 (Version 1)
Quarter: 2021Q1

REPORT INFORMATION
  Report Type: Report from Study
  Country: IT (occurrence: IT)
  Receive Date: 20210308
  Receipt Date: 20210308
  Transmission Date: 20210420
  Serious: Yes (Hospitalization)
  Sender: FDA-Public Use
  Company Number: IT-MYLANLABS-2021M1013740

PATIENT
  Age: 7 Year
  Sex: Female

DRUGS (8)
  1. BACLOFEN. [Suspect]
     Active Substance: BACLOFEN
     Indication: DYSTONIA
     Dosage: UNK
     Route: 048
  2. BACLOFEN. [Suspect]
     Active Substance: BACLOFEN
     Indication: CHOREA
  3. TETRABENAZINE. [Suspect]
     Active Substance: TETRABENAZINE
     Indication: DYSTONIA
     Dosage: UNK
     Route: 065
  4. TETRABENAZINE. [Suspect]
     Active Substance: TETRABENAZINE
     Indication: CHOREA
  5. MIDAZOLAM. [Suspect]
     Active Substance: MIDAZOLAM
     Indication: DYSTONIA
     Dosage: UNK
     Route: 065
  6. PROPOFOL. [Suspect]
     Active Substance: PROPOFOL
     Indication: CHOREA
  7. MIDAZOLAM. [Suspect]
     Active Substance: MIDAZOLAM
     Indication: CHOREA
  8. PROPOFOL. [Suspect]
     Active Substance: PROPOFOL
     Indication: DYSTONIA
     Dosage: UNK
     Route: 065

REACTIONS (1)
  - Drug ineffective [Unknown]
